FAERS Safety Report 20650182 (Version 2)
Quarter: 2022Q2

REPORT INFORMATION
  Report Type: Spontaneous
  Country: US (occurrence: US)
  Receive Date: 20220329
  Receipt Date: 20220609
  Transmission Date: 20220721
  Serious: No
  Sender: FDA-Public Use
  Company Number: US-AVEO ONCOLOGY-2021-AVEO-US003724

PATIENT

DRUGS (20)
  1. FOTIVDA [Suspect]
     Active Substance: TIVOZANIB HYDROCHLORIDE
     Indication: Renal cell carcinoma
     Dosage: 1.34 MG, DAILY FOR 21 DAYS, 7 DAYS OFF
     Route: 048
     Dates: start: 20211126, end: 20220124
  2. FOTIVDA [Suspect]
     Active Substance: TIVOZANIB HYDROCHLORIDE
     Dosage: 1.34 DAILY, TAKE 1 CAPSULE FOR 21 DAYS WITH A 7 DAY REST
     Route: 048
     Dates: start: 20211126, end: 20220124
  3. COREG [Concomitant]
     Active Substance: CARVEDILOL
     Dosage: 6.25 MG
  4. LOMOTIL [Concomitant]
     Active Substance: ATROPINE SULFATE\DIPHENOXYLATE HYDROCHLORIDE
     Dosage: 2.5 MG-0.0025 MG
  5. VITAMIN D [Concomitant]
     Active Substance: VITAMIN D NOS
  6. TOFRANIL [Concomitant]
     Active Substance: IMIPRAMINE HYDROCHLORIDE
     Dosage: 50 MG
  7. LIDOCAINE [Concomitant]
     Active Substance: LIDOCAINE
     Dosage: 2 %
  8. ATIVAN [Concomitant]
     Active Substance: LORAZEPAM
     Dosage: 0.5 MG
  9. DIPHENHYDRAMINE HYDROCHLORIDE\LIDOCAINE HYDROCHLORIDE\NYSTATIN [Concomitant]
     Active Substance: DIPHENHYDRAMINE HYDROCHLORIDE\LIDOCAINE HYDROCHLORIDE\NYSTATIN
  10. OMEPRAZOLE [Concomitant]
     Active Substance: OMEPRAZOLE
     Dosage: 40 MG
  11. VITAMINS [Concomitant]
     Active Substance: VITAMINS
  12. ZOFRAN [Concomitant]
     Active Substance: ONDANSETRON HYDROCHLORIDE
     Dosage: 4 MG
  13. PREDNISONE [Concomitant]
     Active Substance: PREDNISONE
  14. PROMETHAZINE [Concomitant]
     Active Substance: PROMETHAZINE HYDROCHLORIDE
     Dosage: 12.5 MG
  15. IMITREX [Concomitant]
     Active Substance: SUMATRIPTAN SUCCINATE
     Dosage: 100 MG
  16. TRAMADOL [Concomitant]
     Active Substance: TRAMADOL
     Dosage: 50 MG
  17. DIOVAN HCT [Concomitant]
     Active Substance: HYDROCHLOROTHIAZIDE\VALSARTAN
     Dosage: 160-125 MG
  18. TYLENOL [Concomitant]
     Active Substance: ACETAMINOPHEN
  19. IMODIUM [Concomitant]
     Active Substance: LOPERAMIDE HYDROCHLORIDE
     Dosage: UNK
  20. CABOZANTINIB S-MALATE [Concomitant]
     Active Substance: CABOZANTINIB S-MALATE

REACTIONS (6)
  - Nausea [Unknown]
  - Decreased appetite [None]
  - Pain [Unknown]
  - Weight decreased [Unknown]
  - Headache [Unknown]
  - Disease progression [Unknown]
